FAERS Safety Report 20736137 (Version 1)
Quarter: 2022Q2

REPORT INFORMATION
  Report Type: Spontaneous
  Country: US (occurrence: None)
  Receive Date: 20220421
  Receipt Date: 20220421
  Transmission Date: 20220721
  Serious: No
  Sender: FDA-Public Use
  Company Number: None

PATIENT
  Age: 65 Year
  Sex: Female
  Weight: 49.5 kg

DRUGS (27)
  1. TYRVAYA [Suspect]
     Active Substance: VARENICLINE TARTRATE
     Indication: Dry eye
     Dosage: OTHER QUANTITY : 1 SPRAY(S);?FREQUENCY : TWICE A DAY;?OTHER ROUTE : NASAL SPRAY;?
     Route: 050
     Dates: start: 20220412, end: 20220421
  2. TYRVAYA [Suspect]
     Active Substance: VARENICLINE TARTRATE
     Indication: Sjogren^s syndrome
  3. FLOVENT DISKUS [Concomitant]
     Active Substance: FLUTICASONE PROPIONATE
  4. pazeo (olopatadine hydrochloride) [Concomitant]
  5. BUDESONIDE [Concomitant]
     Active Substance: BUDESONIDE
  6. QNASL [Concomitant]
     Active Substance: BECLOMETHASONE DIPROPIONATE
  7. XOPENEX [Concomitant]
     Active Substance: LEVALBUTEROL HYDROCHLORIDE
  8. HYDROXYCHLOROQUINE [Concomitant]
     Active Substance: HYDROXYCHLOROQUINE
  9. PILOCARPINE [Concomitant]
     Active Substance: PILOCARPINE
  10. CEQUA [Concomitant]
     Active Substance: CYCLOSPORINE
  11. HYDROCORTISONE [Concomitant]
     Active Substance: HYDROCORTISONE
  12. LEVOTHYROXINE [Concomitant]
     Active Substance: LEVOTHYROXINE
  13. LIOTHYRONINE [Concomitant]
     Active Substance: LIOTHYRONINE
  14. 5-htp [Concomitant]
  15. ACIDOPHILUS [Concomitant]
     Active Substance: LACTOBACILLUS ACIDOPHILUS
  16. eye promise (zeaxanthin) [Concomitant]
  17. hypomultiple (hypoallergenic multiple vitamin) [Concomitant]
  18. immpower [Concomitant]
  19. mag glycinate (magnesium bis-glycinate) [Concomitant]
  20. MELATONIN [Concomitant]
     Active Substance: MELATONIN
  21. ACETYLCYSTEINE [Concomitant]
     Active Substance: ACETYLCYSTEINE
  22. r-lipoic acid [Concomitant]
  23. silymarin-80 (milk thistle extract) [Concomitant]
  24. HERBALS\TURMERIC [Concomitant]
     Active Substance: HERBALS\TURMERIC
  25. VITAMIN C [Concomitant]
     Active Substance: ASCORBIC ACID
  26. vitamin d synergy (vitamin d3 and vitamin k) [Concomitant]
  27. VITAMIN E [Concomitant]
     Active Substance: .ALPHA.-TOCOPHEROL

REACTIONS (1)
  - Insomnia [None]

NARRATIVE: CASE EVENT DATE: 20220420
